FAERS Safety Report 5380161-0 (Version None)
Quarter: 2007Q3

REPORT INFORMATION
  Report Type: 
  Country: None (occurrence: None)
  Receive Date: 20070706
  Receipt Date: 20070611
  Transmission Date: 20080115
  Serious: No
  Sender: FDA-Public Use
  Company Number: A0650231A

PATIENT
  Age: 74 Year
  Sex: Female
  Weight: 55 kg

DRUGS (6)
  1. TYKERB [Suspect]
     Dosage: 1250MG PER DAY
     Route: 048
     Dates: start: 20070407, end: 20070502
  2. XELODA [Concomitant]
  3. ALTACE [Concomitant]
  4. COREG [Concomitant]
  5. POTASSIUM ACETATE [Concomitant]
  6. MAGNESIUM SULFATE [Concomitant]

REACTIONS (4)
  - DIARRHOEA [None]
  - GLOSSODYNIA [None]
  - LIP PAIN [None]
  - PROCTALGIA [None]
